FAERS Safety Report 19814659 (Version 1)
Quarter: 2021Q3

REPORT INFORMATION
  Report Type: Spontaneous
  Country: US (occurrence: US)
  Receive Date: 20210910
  Receipt Date: 20210910
  Transmission Date: 20211014
  Serious: No
  Sender: FDA-Public Use
  Company Number: None

PATIENT
  Age: 75 Year
  Sex: Male
  Weight: 90 kg

DRUGS (1)
  1. REGEN?COV [Suspect]
     Active Substance: CASIRIVIMAB\IMDEVIMAB
     Indication: COVID-19
     Route: 042
     Dates: start: 20210906, end: 20210906

REACTIONS (8)
  - Tachypnoea [None]
  - Tremor [None]
  - Hyperhidrosis [None]
  - Dyspnoea [None]
  - Hypotension [None]
  - Infusion related reaction [None]
  - Tachycardia [None]
  - Chills [None]

NARRATIVE: CASE EVENT DATE: 20210906
